FAERS Safety Report 9915832 (Version 2)
Quarter: 2014Q1

REPORT INFORMATION
  Report Type: Report from Study
  Country: US (occurrence: US)
  Receive Date: 20140221
  Receipt Date: 20140318
  Transmission Date: 20141002
  Serious: Yes (Life-Threatening, Hospitalization)
  Sender: FDA-Public Use
  Company Number: US-CELGENEUS-163-21660-14022642

PATIENT
  Age: 69 Year
  Sex: Male
  Weight: 79.59 kg

DRUGS (6)
  1. ABRAXANE [Suspect]
     Indication: PANCREATIC CARCINOMA
     Route: 041
     Dates: start: 20140129, end: 20140214
  2. GEMCITABINE [Suspect]
     Indication: PANCREATIC CARCINOMA
     Route: 065
     Dates: start: 20140129, end: 20140214
  3. HYDROXYCHLOROQUINE [Suspect]
     Indication: PANCREATIC CARCINOMA
     Route: 065
  4. OMEPRAZOLE [Concomitant]
     Indication: GASTROOESOPHAGEAL REFLUX DISEASE
     Dosage: 10 MILLIGRAM
     Route: 048
     Dates: start: 2013
  5. LEVEMIR [Concomitant]
     Indication: DIABETES MELLITUS
     Dosage: 45 UNITS
     Route: 058
     Dates: start: 2013
  6. ONDANSETRON [Concomitant]
     Indication: NAUSEA
     Route: 065

REACTIONS (3)
  - Hypokalaemia [Recovered/Resolved]
  - Dehydration [Recovered/Resolved]
  - Abdominal pain [Recovered/Resolved]
